FAERS Safety Report 6644830-4 (Version None)
Quarter: 2010Q1

REPORT INFORMATION
  Report Type: 
  Country: None (occurrence: None)
  Receive Date: 20100322
  Receipt Date: 20100310
  Transmission Date: 20100710
  Serious: Yes (Life-Threatening)
  Sender: FDA-Public Use
  Company Number: IT-PFIZER INC-2010012031

PATIENT
  Age: 59 Year
  Sex: Male

DRUGS (3)
  1. CYTARABINE [Suspect]
     Indication: ACUTE MYELOID LEUKAEMIA
     Dosage: 400 MG, X/DAY
     Route: 042
     Dates: start: 20090224, end: 20090302
  2. ZAVEDOS [Suspect]
     Indication: ACUTE MYELOID LEUKAEMIA
     Dosage: 25 MG, X/DAY
     Route: 042
     Dates: start: 20090224, end: 20090226
  3. ETOPOSIDE [Suspect]
     Indication: ACUTE MYELOID LEUKAEMIA
     Dosage: 200 MG, X/DAY
     Route: 042
     Dates: start: 20090224, end: 20090228

REACTIONS (4)
  - BRONCHOPULMONARY ASPERGILLOSIS [None]
  - ENTEROCOCCAL SEPSIS [None]
  - HUMAN HERPESVIRUS 6 INFECTION [None]
  - PNEUMOCYSTIS JIROVECI PNEUMONIA [None]
